FAERS Safety Report 9380604 (Version 2)
Quarter: 2013Q3

REPORT INFORMATION
  Report Type: Spontaneous
  Country: US (occurrence: US)
  Receive Date: 20130702
  Receipt Date: 20130711
  Transmission Date: 20140515
  Serious: No
  Sender: FDA-Public Use
  Company Number: US-PFIZER INC-2013194406

PATIENT
  Age: 71 Year
  Sex: Female
  Weight: 88.44 kg

DRUGS (1)
  1. LYRICA [Suspect]
     Indication: PAIN IN EXTREMITY
     Dosage: UNK
     Dates: start: 201306

REACTIONS (5)
  - Oedema peripheral [Unknown]
  - Dyspnoea [Unknown]
  - Insomnia [Unknown]
  - Fatigue [Unknown]
  - Headache [Unknown]
